FAERS Safety Report 23864110 (Version 1)
Quarter: 2024Q2

REPORT INFORMATION
  Report Type: Spontaneous
  Country: US (occurrence: None)
  Receive Date: 20240516
  Receipt Date: 20240516
  Transmission Date: 20240716
  Serious: Yes (Disabling)
  Sender: FDA-Public Use
  Company Number: None

PATIENT
  Age: 31 Year
  Sex: Female
  Weight: 49.5 kg

DRUGS (1)
  1. CIPROFLOXACIN [Suspect]
     Active Substance: CIPROFLOXACIN
     Indication: Urinary tract infection
     Dosage: OTHER QUANTITY : 14 TABLET(S);?FREQUENCY : EVERY 12 HOURS;?
     Route: 048
     Dates: start: 200801, end: 20110107

REACTIONS (8)
  - Immune-mediated hepatitis [None]
  - Deformity thorax [None]
  - Muscular weakness [None]
  - Thoracic outlet syndrome [None]
  - Constipation [None]
  - Neuralgia [None]
  - Pelvic organ prolapse [None]
  - Autonomic neuropathy [None]

NARRATIVE: CASE EVENT DATE: 20080101
